FAERS Safety Report 24971597 (Version 1)
Quarter: 2025Q1

REPORT INFORMATION
  Report Type: Spontaneous
  Country: IT (occurrence: IT)
  Receive Date: 20250214
  Receipt Date: 20250214
  Transmission Date: 20250408
  Serious: Yes (Life-Threatening, Hospitalization, Other)
  Sender: EMD SERONO INC
  Company Number: IT-Merck Healthcare KGaA-2025006926

PATIENT
  Age: 91 Year
  Sex: Female

DRUGS (1)
  1. METFORMIN [Suspect]
     Active Substance: METFORMIN HYDROCHLORIDE
     Indication: Type 2 diabetes mellitus
     Dates: start: 2020, end: 20250123

REACTIONS (4)
  - Lactic acidosis [Recovered/Resolved]
  - Pulmonary oedema [Unknown]
  - Aortic stenosis [Unknown]
  - Sepsis [Unknown]

NARRATIVE: CASE EVENT DATE: 20250124
